FAERS Safety Report 16550476 (Version 1)
Quarter: 2019Q3

REPORT INFORMATION
  Report Type: Spontaneous
  Country: US (occurrence: US)
  Receive Date: 20190709
  Receipt Date: 20190709
  Transmission Date: 20191004
  Serious: No
  Sender: FDA-Public Use
  Company Number: None

PATIENT
  Age: 74 Year
  Sex: Female
  Weight: 58.95 kg

DRUGS (1)
  1. EQUATE COMFORT [Suspect]
     Active Substance: CARBOXYMETHYLCELLULOSE SODIUM\HYPROMELLOSES
     Indication: DRY EYE
     Route: 047

REACTIONS (4)
  - Eye discharge [None]
  - Eye infection [None]
  - Recalled product administered [None]
  - Drug hypersensitivity [None]

NARRATIVE: CASE EVENT DATE: 20190625
